FAERS Safety Report 4880851-X (Version None)
Quarter: 2005Q4

REPORT INFORMATION
  Report Type: 
  Country: None (occurrence: None)
  Receive Date: 20051223
  Receipt Date: 20051128
  Transmission Date: 20060501
  Serious: No
  Sender: FDA-Public Use
  Company Number: 05P-163-0315897-00

PATIENT
  Age: 73 Year
  Sex: Female
  Weight: 90.7194 kg

DRUGS (10)
  1. HUMIRA [Suspect]
     Indication: RHEUMATOID ARTHRITIS
     Dosage: 40 MG, 1 IN 2 WK, SUBCUTANEOUS
     Route: 058
     Dates: start: 20050901, end: 20051017
  2. METHOTREXATE [Concomitant]
  3. POTASSIUM CHLORIDE [Concomitant]
  4. METOPROLOL SUCCINATE [Concomitant]
  5. HYDROCHLOROTHIAZIDE [Concomitant]
  6. DIOVAN [Concomitant]
  7. FOLIC ACID [Concomitant]
  8. PARACETAMOL [Concomitant]
  9. SUCRALFATE [Concomitant]
  10. SALMETEROL XINAFOATE [Concomitant]

REACTIONS (3)
  - ARTHRITIS [None]
  - RASH ERYTHEMATOUS [None]
  - SKIN NODULE [None]
